FAERS Safety Report 25852301 (Version 1)
Quarter: 2025Q3

REPORT INFORMATION
  Report Type: Spontaneous
  Country: US (occurrence: US)
  Receive Date: 20250926
  Receipt Date: 20250926
  Transmission Date: 20251021
  Serious: Yes (Life-Threatening, Hospitalization, Other)
  Sender: NOVARTIS
  Company Number: US-MLMSERVICE-20220830-3767621-1

PATIENT

DRUGS (2)
  1. CYCLOSPORINE [Suspect]
     Active Substance: CYCLOSPORINE
     Indication: Immunosuppressant drug therapy
     Route: 065
  2. MYCOPHENOLATE MOFETIL [Suspect]
     Active Substance: MYCOPHENOLATE MOFETIL
     Indication: Immunosuppressant drug therapy
     Route: 065

REACTIONS (6)
  - Hemiparesis [Recovered/Resolved]
  - Cytomegalovirus viraemia [Recovered/Resolved]
  - Diffuse large B-cell lymphoma [Recovered/Resolved]
  - Post transplant lymphoproliferative disorder [Recovered/Resolved]
  - Central nervous system lymphoma [Recovered/Resolved]
  - Immunosuppressant drug level increased [Recovered/Resolved]
